FAERS Safety Report 5633990-X (Version None)
Quarter: 2008Q1

REPORT INFORMATION
  Report Type: 
  Country: None (occurrence: None)
  Receive Date: 20080221
  Receipt Date: 20080220
  Transmission Date: 20080703
  Serious: Yes (Death, Other)
  Sender: FDA-Public Use
  Company Number: JP-MERCK-0802USA01866

PATIENT
  Age: 67 Year
  Sex: Male
  Weight: 75 kg

DRUGS (12)
  1. HYDROCORTONE [Suspect]
     Indication: ACUTE RESPIRATORY DISTRESS SYNDROME
     Route: 042
  2. HYDROCORTONE [Suspect]
     Route: 042
  3. HYDROCORTONE [Suspect]
     Route: 042
  4. HYDROCORTONE [Suspect]
     Route: 042
  5. HYDROCORTONE [Suspect]
     Route: 042
  6. HYDROCORTONE [Suspect]
     Route: 042
  7. HYDROCORTONE [Suspect]
     Route: 042
  8. HYDROCORTONE [Suspect]
     Route: 042
  9. HYDROCORTONE [Suspect]
     Route: 042
  10. PREDNISOLONE [Suspect]
     Indication: ACUTE RESPIRATORY DISTRESS SYNDROME
     Route: 048
  11. METHYLPREDNISOLONE [Suspect]
     Indication: ACUTE RESPIRATORY DISTRESS SYNDROME
     Route: 065
  12. METHYLPREDNISOLONE [Suspect]
     Route: 065

REACTIONS (2)
  - ACUTE RESPIRATORY DISTRESS SYNDROME [None]
  - STAPHYLOCOCCAL MEDIASTINITIS [None]
